FAERS Safety Report 16920199 (Version 3)
Quarter: 2019Q4

REPORT INFORMATION
  Report Type: Report from Study
  Country: US (occurrence: US)
  Receive Date: 20191015
  Receipt Date: 20191127
  Transmission Date: 20200122
  Serious: Yes (Death, Other)
  Sender: FDA-Public Use
  Company Number: NVSC2019US002881

PATIENT
  Sex: Female
  Weight: 132 kg

DRUGS (1)
  1. AFINITOR [Suspect]
     Active Substance: EVEROLIMUS
     Indication: PRODUCT USED FOR UNKNOWN INDICATION
     Route: 065

REACTIONS (6)
  - Blood test abnormal [Unknown]
  - Death [Fatal]
  - Hepatic enzyme increased [Unknown]
  - Hepatic cancer [Unknown]
  - Metastases to breast [Unknown]
  - Metastases to liver [Unknown]
